FAERS Safety Report 8923888 (Version 1)
Quarter: 2012Q4

REPORT INFORMATION
  Report Type: 
  Country: BR (occurrence: BR)
  Receive Date: 20121126
  Receipt Date: 20121126
  Transmission Date: 20130627
  Serious: Yes (Hospitalization, Other)
  Sender: FDA-Public Use
  Company Number: BR-BAYER-2012-117588

PATIENT
  Sex: Female

DRUGS (10)
  1. ALLURENE [Suspect]
     Indication: ENDOMETRIOSIS
     Dosage: UNK
     Route: 048
     Dates: start: 201209
  2. MIRENA [Suspect]
     Indication: CONTRACEPTION
     Dosage: 20 ?g/d, CONT
     Route: 015
     Dates: start: 2010
  3. XARELTO [Suspect]
     Indication: PULMONARY THROMBOEMBOLISM
     Dosage: 20 mg, QD
     Route: 048
     Dates: start: 201208
  4. XARELTO [Suspect]
     Indication: DEEP VEIN THROMBOSIS
  5. MAREVAN [Concomitant]
     Indication: ENDOMETRIOSIS ABLATION
     Dosage: UNK
     Dates: start: 201207
  6. PANTOPRAZOLE [Concomitant]
     Indication: PROPHYLAXIS
     Dosage: 40 mg, QD
     Route: 048
     Dates: start: 201201
  7. DOMPERIDONE [Concomitant]
     Indication: PROPHYLAXIS
     Dosage: 10 mg, QD
     Route: 048
     Dates: start: 201201
  8. BUSCOPAN COMPOSTO [Concomitant]
     Indication: PAIN
     Dosage: 2 DF, PRN
     Route: 048
     Dates: start: 201208
  9. BI-PROFENID [Concomitant]
     Indication: PAIN
     Dosage: UNK
     Route: 048
     Dates: start: 2012, end: 2012
  10. FLUDROCORTISONE [Concomitant]
     Indication: VASOVAGAL ATTACK

REACTIONS (13)
  - Endometriosis [None]
  - Pulmonary embolism [None]
  - Fatigue [None]
  - Dyspnoea [None]
  - Chest pain [None]
  - Cyanosis [None]
  - Fatigue [None]
  - Syncope [None]
  - Deep vein thrombosis [None]
  - Pain in extremity [None]
  - Skin discolouration [None]
  - Nausea [None]
  - Incorrect dose administered [None]
